FAERS Safety Report 8913151 (Version 4)
Quarter: 2012Q4

REPORT INFORMATION
  Report Type: 
  Country: US (occurrence: US)
  Receive Date: 20121116
  Receipt Date: 20121212
  Transmission Date: 20130627
  Serious: Yes (Life-Threatening, Hospitalization)
  Sender: FDA-Public Use
  Company Number: US-MERCK-1211USA005167

PATIENT
  Age: 79 Year
  Sex: Male
  Weight: 78.4 kg

DRUGS (11)
  1. VORINOSTAT [Suspect]
     Indication: DIFFUSE LARGE B-CELL LYMPHOMA
     Dosage: 400 mg, 1-5 days
     Route: 048
     Dates: start: 20121023, end: 20121027
  2. VORINOSTAT [Suspect]
     Dosage: 400 mg, qd
     Route: 048
     Dates: start: 20121114, end: 20121118
  3. RITUXIMAB [Suspect]
     Indication: DIFFUSE LARGE B-CELL LYMPHOMA
     Dosage: 375 mg/m2, on day 3
     Route: 042
     Dates: start: 20121116, end: 20121116
  4. CYCLOPHOSPHAMIDE [Suspect]
     Indication: DIFFUSE LARGE B-CELL LYMPHOMA
     Dosage: 750 mg/m2, over 30-60 minutes on day 3
     Route: 042
     Dates: start: 20121025, end: 20121025
  5. CYCLOPHOSPHAMIDE [Suspect]
     Dosage: 750 mg/m2, over 30-60 minutes on day 3
     Route: 042
     Dates: start: 20121116, end: 20121116
  6. DOXORUBICIN [Suspect]
     Indication: DIFFUSE LARGE B-CELL LYMPHOMA
     Dosage: 50 mg/m2, IVP on day 3
     Route: 042
     Dates: start: 20121025, end: 20121025
  7. DOXORUBICIN [Suspect]
     Dosage: 50 mg/m2, IVP on day 3
     Route: 042
     Dates: start: 20121116, end: 20121116
  8. VINCRISTINE [Suspect]
     Indication: DIFFUSE LARGE B-CELL LYMPHOMA
     Dosage: 1.4 mg/m2, IVP
     Route: 042
     Dates: start: 20121025, end: 20121025
  9. VINCRISTINE [Suspect]
     Dosage: 1.4 mg/m2, IVP
     Route: 042
     Dates: start: 20121116, end: 20121116
  10. PREDNISONE [Suspect]
     Indication: DIFFUSE LARGE B-CELL LYMPHOMA
     Dosage: 100 mg, qd
     Route: 048
     Dates: start: 20121025, end: 20121029
  11. PREDNISONE [Suspect]
     Dosage: 100 mg, qd
     Route: 048
     Dates: start: 20121116, end: 20121120

REACTIONS (5)
  - Jejunal perforation [Recovering/Resolving]
  - Febrile neutropenia [Recovering/Resolving]
  - Platelet count decreased [Recovering/Resolving]
  - Anaemia [Recovering/Resolving]
  - Febrile neutropenia [Recovering/Resolving]
